FAERS Safety Report 8546285 (Version 3)
Quarter: 2012Q4

REPORT INFORMATION
  Report Type: 
  Country: PT (occurrence: PT)
  Receive Date: 20120504
  Receipt Date: 20121001
  Transmission Date: 20130627
  Serious: Yes (Hospitalization, Other)
  Sender: FDA-Public Use
  Company Number: PHHY2012PT036397

PATIENT
  Age: 17 Year
  Sex: Female

DRUGS (10)
  1. CICLOSPORIN [Suspect]
     Indication: IMMUNOSUPPRESSANT DRUG THERAPY
  2. METHYLPREDNISOLONE NOS [Suspect]
     Indication: IMMUNOSUPPRESSANT DRUG THERAPY
  3. TACROLIMUS [Suspect]
     Indication: IMMUNOSUPPRESSANT DRUG THERAPY
  4. ANTITHYMOCYTE IMMUNOGLOBULIN [Suspect]
     Indication: IMMUNOSUPPRESSANT DRUG THERAPY
  5. OKT 3 [Suspect]
     Indication: IMMUNOSUPPRESSANT DRUG THERAPY
  6. MYCOPHENOLATE MOFETIL [Concomitant]
     Indication: IMMUNOSUPPRESSANT DRUG THERAPY
  7. STEROIDS NOS [Concomitant]
     Indication: IMMUNOSUPPRESSANT DRUG THERAPY
  8. PHYSIONEAL [Concomitant]
     Indication: PERITONEAL DIALYSIS
  9. EXTRANEAL [Concomitant]
  10. PREDNISOLONE [Concomitant]
     Dosage: 1 mg, UNK
     Route: 048

REACTIONS (19)
  - Sclerosing encapsulating peritonitis [Recovering/Resolving]
  - Abdominal discomfort [Recovering/Resolving]
  - Constipation [Recovering/Resolving]
  - Abdominal pain [Recovering/Resolving]
  - Nausea [Recovering/Resolving]
  - Vomiting [Recovering/Resolving]
  - Decreased appetite [Recovering/Resolving]
  - Pallor [Recovering/Resolving]
  - Dehydration [Recovering/Resolving]
  - Abdominal tenderness [Recovering/Resolving]
  - Intestinal dilatation [Unknown]
  - Gastrointestinal sounds abnormal [Recovering/Resolving]
  - Peritonitis bacterial [Recovering/Resolving]
  - Staphylococcal infection [Unknown]
  - Appendicitis [Recovering/Resolving]
  - Appendix disorder [Unknown]
  - Kidney transplant rejection [Recovering/Resolving]
  - Renal graft loss [Recovering/Resolving]
  - Renal impairment [Recovering/Resolving]
